FAERS Safety Report 9309555 (Version 1)
Quarter: 2013Q2

REPORT INFORMATION
  Report Type: Spontaneous
  Country: US (occurrence: US)
  Receive Date: 20130525
  Receipt Date: 20130525
  Transmission Date: 20140414
  Serious: Yes (Other)
  Sender: FDA-Public Use
  Company Number: US-BRISTOL-MYERS SQUIBB COMPANY-17462573

PATIENT
  Age: 62 Year
  Sex: Female
  Weight: 90.7 kg

DRUGS (7)
  1. BYDUREON [Suspect]
     Indication: WEIGHT DECREASED
     Route: 058
     Dates: start: 20130119
  2. BYETTA [Suspect]
     Indication: WEIGHT DECREASED
     Route: 058
     Dates: end: 201301
  3. CONCERTA [Concomitant]
     Indication: ANXIETY DISORDER
     Route: 048
  4. XANAX [Concomitant]
     Indication: ANXIETY DISORDER
     Dosage: 1MG EACH EVENING;?3MG EACH MORNING
     Route: 048
  5. SYNTHROID [Concomitant]
     Indication: THYROID DISORDER
     Route: 048
  6. CYMBALTA [Concomitant]
     Indication: ANXIETY DISORDER
     Route: 048
  7. TELMISARTAN+AMLODIPINE BESYLATE [Concomitant]
     Indication: HYPERTENSION
     Route: 048

REACTIONS (14)
  - Face oedema [Recovering/Resolving]
  - Lip swelling [Recovering/Resolving]
  - Pharyngeal oedema [Recovering/Resolving]
  - Erythema [Recovering/Resolving]
  - Influenza like illness [Recovered/Resolved]
  - Pyrexia [Recovering/Resolving]
  - Chills [Recovered/Resolved]
  - Hot flush [Recovering/Resolving]
  - Oropharyngeal pain [Recovering/Resolving]
  - Dry skin [Recovering/Resolving]
  - Restless legs syndrome [Recovering/Resolving]
  - Weight decreased [Unknown]
  - Nausea [Recovering/Resolving]
  - Off label use [Not Recovered/Not Resolved]
